FAERS Safety Report 6441586-5 (Version None)
Quarter: 2009Q4

REPORT INFORMATION
  Report Type: 
  Country: None (occurrence: None)
  Receive Date: 20091116
  Receipt Date: 20091103
  Transmission Date: 20100525
  Serious: Yes (Hospitalization)
  Sender: FDA-Public Use
  Company Number: DE-AMGEN-US373020

PATIENT
  Sex: Female

DRUGS (5)
  1. ENBREL [Suspect]
     Indication: RHEUMATOID ARTHRITIS
     Route: 058
  2. OMEPRAZOLE [Concomitant]
     Route: 065
  3. CALCIUM [Concomitant]
     Route: 065
  4. CORTISONE [Concomitant]
     Route: 048
  5. VOLTAREN [Concomitant]
     Route: 065

REACTIONS (7)
  - HAEMATOMA [None]
  - HYPERKERATOSIS [None]
  - HYSTERECTOMY [None]
  - IMPAIRED HEALING [None]
  - PAIN IN EXTREMITY [None]
  - POST PROCEDURAL HAEMATOMA [None]
  - TENDERNESS [None]
